FAERS Safety Report 9539191 (Version 1)
Quarter: 2013Q3

REPORT INFORMATION
  Report Type: Spontaneous
  Country: US (occurrence: None)
  Receive Date: 20130917
  Receipt Date: 20130917
  Transmission Date: 20140515
  Serious: Yes (Other)
  Sender: FDA-Public Use
  Company Number: 1309-1160

PATIENT
  Age: 81 Year
  Sex: Female

DRUGS (2)
  1. EYLEA (AFLIBERCEPT) (INJECTION) (AFLIBERCEPT) [Suspect]
     Indication: MACULAR DEGENERATION
     Dates: start: 201308
  2. AREDS II (ICAPS AREDS) [Concomitant]

REACTIONS (2)
  - Eye haemorrhage [None]
  - Nasal disorder [None]
